FAERS Safety Report 6987782-X (Version None)
Quarter: 2010Q3

REPORT INFORMATION
  Report Type: 
  Country: None (occurrence: None)
  Receive Date: 20100914
  Receipt Date: 20100830
  Transmission Date: 20110219
  Serious: Yes (Hospitalization)
  Sender: FDA-Public Use
  Company Number: IDA-00417

PATIENT
  Age: 58 Year
  Sex: Male

DRUGS (12)
  1. NEXIUM [Suspect]
     Dosage: 40 MG DAILY ORAL
     Route: 048
     Dates: start: 20100520, end: 20100522
  2. PROPRANOLOL [Concomitant]
     Dosage: 40 MG BID  ORAL
     Route: 048
  3. CRESTOR [Suspect]
     Dosage: 10 MG DAILY ORAL
     Route: 048
     Dates: end: 20100528
  4. TOPIRAMATE [Suspect]
     Dosage: 50 MG BID  ORAL
     Route: 048
     Dates: end: 20100828
  5. ESCITALOPRAM [Suspect]
     Dosage: 20 MG DAILY ORAL
     Route: 048
     Dates: end: 20100315
  6. CREON [Suspect]
     Dosage: 12000 IU ORAL
     Route: 048
  7. DOGMATIL (SULPIRIDE) [Suspect]
     Dosage: 50 MG BID ORAL
     Route: 048
     Dates: start: 20100520, end: 20100522
  8. ACETAMINOPHEN [Suspect]
     Dosage: 1 G TID ORAL
     Route: 048
  9. HUMALOG [Suspect]
     Indication: TYPE 1 DIABETES MELLITUS
     Dosage: 32 IU BID   SUBCUTANEOUS
     Route: 058
  10. TRAMADOL HCL [Concomitant]
  11. IXPRIM (PARACETAMOL, TRAMADOL) [Concomitant]
  12. PERFALGAN (PARACETAMOL) [Concomitant]

REACTIONS (4)
  - ASTHENIA [None]
  - DECREASED APPETITE [None]
  - HEADACHE [None]
  - PANCREATITIS ACUTE [None]
